FAERS Safety Report 8538649-7 (Version None)
Quarter: 2012Q3

REPORT INFORMATION
  Report Type: 
  Country: None (occurrence: None)
  Receive Date: 20120713
  Receipt Date: 20120628
  Transmission Date: 20120928
  Serious: Yes (Hospitalization)
  Sender: FDA-Public Use
  Company Number: 2012000161

PATIENT
  Age: 60 Year
  Sex: Male
  Weight: 66.2 kg

DRUGS (2)
  1. HUMIRA [Suspect]
     Indication: PRODUCT USED FOR UNKNOWN INDICATION
     Dosage: 40 MG
     Dates: start: 20091115, end: 20110415
  2. ACEON [Suspect]
     Indication: PRODUCT USED FOR UNKNOWN INDICATION

REACTIONS (4)
  - RENAL FAILURE ACUTE [None]
  - PROTEINURIA [None]
  - MESANGIOPROLIFERATIVE GLOMERULONEPHRITIS [None]
  - HAEMATURIA [None]
